FAERS Safety Report 25659840 (Version 1)
Quarter: 2025Q3

REPORT INFORMATION
  Report Type: Spontaneous
  Country: US (occurrence: US)
  Receive Date: 20250808
  Receipt Date: 20250808
  Transmission Date: 20251021
  Serious: Yes (Hospitalization)
  Sender: GRIFOLS
  Company Number: US-IGSA-BIG0036844

PATIENT
  Sex: Female
  Weight: 88.9 kg

DRUGS (12)
  1. GAMUNEX-C [Suspect]
     Active Substance: HUMAN IMMUNOGLOBULIN G
     Indication: Polymyositis
     Route: 065
     Dates: start: 20190313
  2. GAMUNEX-C [Suspect]
     Active Substance: HUMAN IMMUNOGLOBULIN G
     Route: 065
     Dates: start: 20190313
  3. ACETAMINOPHEN [Concomitant]
     Active Substance: ACETAMINOPHEN
     Indication: Premedication
  4. DIPHENHYDRAMINE [Concomitant]
     Active Substance: DIPHENHYDRAMINE
     Indication: Premedication
  5. METHYLPREDNISOLONE [Concomitant]
     Active Substance: METHYLPREDNISOLONE
     Indication: Premedication
  6. TRULICITY [Concomitant]
     Active Substance: DULAGLUTIDE
  7. ZETIA [Concomitant]
     Active Substance: EZETIMIBE
  8. PEPCID AC [Concomitant]
     Active Substance: FAMOTIDINE
  9. ADENOSINE [Concomitant]
     Active Substance: ADENOSINE
  10. SYNTHROID [Concomitant]
     Active Substance: LEVOTHYROXINE SODIUM
  11. LISINOPRIL [Concomitant]
     Active Substance: LISINOPRIL
  12. TENOFOVIR [Concomitant]
     Active Substance: TENOFOVIR

REACTIONS (2)
  - Pruritus [Unknown]
  - Urticaria [Unknown]
